FAERS Safety Report 19958523 (Version 1)
Quarter: 2021Q4

REPORT INFORMATION
  Report Type: Spontaneous
  Country: BG (occurrence: BG)
  Receive Date: 20211015
  Receipt Date: 20211015
  Transmission Date: 20220303
  Serious: Yes (Death, Life-Threatening, Hospitalization, Other)
  Sender: FDA-Public Use
  Company Number: BG-MLMSERVICE-20211001-3140889-1

PATIENT
  Age: 20 Year
  Sex: Female

DRUGS (2)
  1. ACETAMINOPHEN [Suspect]
     Active Substance: ACETAMINOPHEN
     Indication: Product used for unknown indication
     Dosage: 5 G, QD
     Route: 048
  2. ACETAMINOPHEN [Suspect]
     Active Substance: ACETAMINOPHEN
     Indication: Overdose
     Dosage: 10 GRAMS, SINGLE
     Route: 048
     Dates: start: 201911, end: 201911

REACTIONS (12)
  - Vomiting [Fatal]
  - Overdose [Fatal]
  - Thrombocytopenia [Fatal]
  - Hepatic encephalopathy [Fatal]
  - Nausea [Fatal]
  - Coma [Fatal]
  - Pulmonary oedema [Fatal]
  - Liver injury [Fatal]
  - Toxicity to various agents [Fatal]
  - Mucosal haemorrhage [Fatal]
  - Anaemia [Fatal]
  - Overdose [Fatal]

NARRATIVE: CASE EVENT DATE: 20191101
